FAERS Safety Report 23948225 (Version 3)
Quarter: 2024Q2

REPORT INFORMATION
  Report Type: Spontaneous
  Country: US (occurrence: US)
  Receive Date: 20240607
  Receipt Date: 20240628
  Transmission Date: 20240716
  Serious: No
  Sender: FDA-Public Use
  Company Number: US-SA-SAC20240603000118

PATIENT
  Age: 36 Year
  Sex: Female
  Weight: 96 kg

DRUGS (8)
  1. CABLIVI [Suspect]
     Active Substance: CAPLACIZUMAB-YHDP
     Indication: Haemolytic uraemic syndrome
     Dosage: 11 MG, QD
     Route: 058
     Dates: start: 20240521, end: 202405
  2. CABLIVI [Suspect]
     Active Substance: CAPLACIZUMAB-YHDP
     Indication: Haemolytic uraemic syndrome
     Dosage: 11 MG, QD
     Route: 058
     Dates: start: 20240521, end: 202405
  3. CABLIVI [Suspect]
     Active Substance: CAPLACIZUMAB-YHDP
     Indication: Haemolytic uraemic syndrome
     Dosage: 11 MG, QD
     Route: 058
     Dates: start: 20240521, end: 202405
  4. CABLIVI [Suspect]
     Active Substance: CAPLACIZUMAB-YHDP
     Indication: Haemolytic uraemic syndrome
     Dosage: 11 MG, QD
     Route: 058
     Dates: start: 20240521, end: 202405
  5. CABLIVI [Suspect]
     Active Substance: CAPLACIZUMAB-YHDP
     Dosage: 11 MG, QD
     Route: 058
     Dates: start: 2024
  6. CABLIVI [Suspect]
     Active Substance: CAPLACIZUMAB-YHDP
     Dosage: 11 MG, QD
     Route: 058
     Dates: start: 2024
  7. CABLIVI [Suspect]
     Active Substance: CAPLACIZUMAB-YHDP
     Dosage: 11 MG, QD
     Route: 058
     Dates: start: 2024
  8. CABLIVI [Suspect]
     Active Substance: CAPLACIZUMAB-YHDP
     Dosage: 11 MG, QD
     Route: 058
     Dates: start: 2024

REACTIONS (12)
  - Haematocrit decreased [Not Recovered/Not Resolved]
  - Haemoglobin decreased [Not Recovered/Not Resolved]
  - Menstrual disorder [Unknown]
  - Oral pain [Unknown]
  - Peripheral swelling [Unknown]
  - Rash macular [Unknown]
  - Condition aggravated [Not Recovered/Not Resolved]
  - Asthenia [Unknown]
  - Fatigue [Unknown]
  - Gingival bleeding [Unknown]
  - Epistaxis [Unknown]
  - Product use in unapproved indication [Unknown]

NARRATIVE: CASE EVENT DATE: 20240101
